FAERS Safety Report 7893071-1 (Version None)
Quarter: 2011Q4

REPORT INFORMATION
  Report Type: 
  Country: None (occurrence: None)
  Receive Date: 20111104
  Receipt Date: 20111103
  Transmission Date: 20120403
  Serious: Yes (Other)
  Sender: FDA-Public Use
  Company Number: IT-PFIZER INC-2011269152

PATIENT
  Age: 77 Year
  Sex: Female

DRUGS (6)
  1. LEVOTHYROXINE SODIUM [Concomitant]
     Dosage: UNK
  2. ZOLOFT [Suspect]
     Indication: DEPRESSION
     Dosage: 25 MG, DAILY
     Route: 048
     Dates: start: 20111018, end: 20111023
  3. LASIX [Concomitant]
     Dosage: 50 MG, UNK
     Route: 048
  4. LANSOPRAZOLE [Concomitant]
     Dosage: 30 MG, UNK
     Route: 048
  5. ZOLOFT [Suspect]
     Dosage: 50 MG, DAILY
     Route: 048
     Dates: start: 20111024, end: 20111027
  6. ASPIRIN [Concomitant]
     Dosage: 75 MG, UNK
     Route: 048

REACTIONS (5)
  - DISORIENTATION [None]
  - HALLUCINATION [None]
  - FEELING HOT [None]
  - HYPERHIDROSIS [None]
  - SOPOR [None]
